FAERS Safety Report 6138579-4 (Version None)
Quarter: 2009Q1

REPORT INFORMATION
  Report Type: 
  Country: None (occurrence: None)
  Receive Date: 20090331
  Receipt Date: 20090304
  Transmission Date: 20090719
  Serious: Yes (Disabling, Other)
  Sender: FDA-Public Use
  Company Number: US-PFIZER INC-2005113933

PATIENT
  Sex: Male
  Weight: 63 kg

DRUGS (7)
  1. LIPITOR [Suspect]
     Indication: BLOOD CHOLESTEROL INCREASED
     Route: 048
     Dates: start: 19990801, end: 20010101
  2. POTASSIUM CHLORIDE [Concomitant]
     Route: 048
  3. ANTIHYPERTENSIVES [Concomitant]
     Route: 065
  4. PROCARDIA XL [Concomitant]
     Dosage: DAILY
     Route: 048
  5. NIFEDIPINE [Concomitant]
  6. ARTHROTEC [Concomitant]
     Dosage: DAILY
     Route: 048
  7. ASPIRIN [Concomitant]

REACTIONS (44)
  - ABASIA [None]
  - ABDOMINAL PAIN [None]
  - AMNESIA [None]
  - ARTHRALGIA [None]
  - ARTHRITIS [None]
  - ARTHROPATHY [None]
  - ASTHENIA [None]
  - BALANCE DISORDER [None]
  - BLOOD CREATINE PHOSPHOKINASE INCREASED [None]
  - BLOOD LACTATE DEHYDROGENASE INCREASED [None]
  - BRONCHITIS [None]
  - C-REACTIVE PROTEIN INCREASED [None]
  - CEREBRAL INFARCTION [None]
  - CEREBROVASCULAR ACCIDENT [None]
  - ENZYME ABNORMALITY [None]
  - FACE INJURY [None]
  - FALL [None]
  - FATIGUE [None]
  - GRANULOMA [None]
  - HYPOAESTHESIA [None]
  - IMPAIRED WORK ABILITY [None]
  - INSOMNIA [None]
  - JOINT SPRAIN [None]
  - JOINT STIFFNESS [None]
  - MUSCLE INJURY [None]
  - MUSCLE SPASMS [None]
  - MUSCULOSKELETAL STIFFNESS [None]
  - MYALGIA [None]
  - MYOGLOBIN BLOOD INCREASED [None]
  - MYOPATHY [None]
  - MYOSITIS [None]
  - NERVOUS SYSTEM DISORDER [None]
  - NEURALGIA [None]
  - NEUROMYOPATHY [None]
  - NEUROPATHY PERIPHERAL [None]
  - OEDEMA PERIPHERAL [None]
  - PAIN IN EXTREMITY [None]
  - PARAESTHESIA [None]
  - PLEURITIC PAIN [None]
  - POLYNEUROPATHY [None]
  - SPINAL COLUMN STENOSIS [None]
  - SPINAL CORD DISORDER [None]
  - SPINAL OSTEOARTHRITIS [None]
  - VISUAL IMPAIRMENT [None]
